FAERS Safety Report 23883099 (Version 4)
Quarter: 2024Q3

REPORT INFORMATION
  Report Type: Report from Study
  Country: DE (occurrence: DE)
  Receive Date: 20240522
  Receipt Date: 20240830
  Transmission Date: 20241017
  Serious: Yes (Death, Other)
  Sender: AMGEN
  Company Number: DE-SA-SAC20240215000982

PATIENT
  Age: 84 Year
  Sex: Female

DRUGS (66)
  1. CARFILZOMIB [Suspect]
     Active Substance: CARFILZOMIB
     Indication: Plasma cell myeloma refractory
     Dosage: 96 MG
     Route: 065
     Dates: start: 20230816, end: 20230831
  2. CARFILZOMIB [Suspect]
     Active Substance: CARFILZOMIB
     Dosage: 96 MG
     Route: 065
     Dates: start: 20231108, end: 20231123
  3. CARFILZOMIB [Suspect]
     Active Substance: CARFILZOMIB
     Dosage: 96 MG
     Route: 065
     Dates: start: 20231206, end: 20231215
  4. CARFILZOMIB [Suspect]
     Active Substance: CARFILZOMIB
     Dosage: 34 MG
     Route: 065
     Dates: start: 20230426, end: 20230427
  5. CARFILZOMIB [Suspect]
     Active Substance: CARFILZOMIB
     Dosage: 96 MG
     Route: 065
     Dates: start: 20240228, end: 20240314
  6. CARFILZOMIB [Suspect]
     Active Substance: CARFILZOMIB
     Dosage: 96 MG
     Route: 065
     Dates: start: 20240424
  7. CARFILZOMIB [Suspect]
     Active Substance: CARFILZOMIB
     Dosage: 96 MG
     Route: 065
     Dates: start: 20230524, end: 20230608
  8. CARFILZOMIB [Suspect]
     Active Substance: CARFILZOMIB
     Dosage: 96 MG
     Route: 065
     Dates: start: 20240131, end: 20240206
  9. CARFILZOMIB [Suspect]
     Active Substance: CARFILZOMIB
     Dosage: 96 MG
     Route: 065
     Dates: start: 20240214, end: 20240215
  10. CARFILZOMIB [Suspect]
     Active Substance: CARFILZOMIB
     Dosage: 96 MG
     Route: 065
     Dates: start: 20230913, end: 20230928
  11. CARFILZOMIB [Suspect]
     Active Substance: CARFILZOMIB
     Dosage: 96 MG
     Route: 065
     Dates: start: 20230503, end: 20230511
  12. CARFILZOMIB [Suspect]
     Active Substance: CARFILZOMIB
     Dosage: 96 MG
     Route: 065
     Dates: start: 20240311, end: 20240411
  13. CARFILZOMIB [Suspect]
     Active Substance: CARFILZOMIB
     Dosage: 96 MG
     Route: 065
     Dates: start: 20240103, end: 20240118
  14. CARFILZOMIB [Suspect]
     Active Substance: CARFILZOMIB
     Dosage: 96 MG
     Route: 065
     Dates: start: 20230816, end: 20230831
  15. CARFILZOMIB [Suspect]
     Active Substance: CARFILZOMIB
     Dosage: 96 MG
     Route: 065
     Dates: start: 20231011, end: 20231019
  16. CARFILZOMIB [Suspect]
     Active Substance: CARFILZOMIB
     Dosage: 96 MG
     Route: 065
     Dates: start: 20230719, end: 20230803
  17. CARFILZOMIB [Suspect]
     Active Substance: CARFILZOMIB
     Dosage: 96 MG
     Route: 065
     Dates: start: 20230621, end: 20230706
  18. CARFILZOMIB [Suspect]
     Active Substance: CARFILZOMIB
     Dosage: 96 MG
     Route: 065
     Dates: start: 20240214, end: 20240214
  19. DEXAMETHASONE [Suspect]
     Active Substance: DEXAMETHASONE
     Indication: Plasma cell myeloma refractory
     Dosage: 8 MG
     Route: 065
     Dates: start: 20240131, end: 20240206
  20. DEXAMETHASONE [Suspect]
     Active Substance: DEXAMETHASONE
     Dosage: 8 MG
     Route: 065
     Dates: start: 20240103, end: 20240118
  21. DEXAMETHASONE [Suspect]
     Active Substance: DEXAMETHASONE
     Dosage: 8 MG
     Route: 065
     Dates: start: 20231206, end: 20231215
  22. DEXAMETHASONE [Suspect]
     Active Substance: DEXAMETHASONE
     Dosage: 8 MG
     Route: 065
     Dates: start: 20231108, end: 20231123
  23. DEXAMETHASONE [Suspect]
     Active Substance: DEXAMETHASONE
     Dosage: 8 MG
     Route: 065
     Dates: start: 20230913, end: 20230928
  24. DEXAMETHASONE [Suspect]
     Active Substance: DEXAMETHASONE
     Dosage: 20 MG
     Route: 065
     Dates: start: 20230621, end: 20230713
  25. DEXAMETHASONE [Suspect]
     Active Substance: DEXAMETHASONE
     Dosage: 8 MILLIGRAM
     Route: 065
     Dates: start: 20240214, end: 20240215
  26. DEXAMETHASONE [Suspect]
     Active Substance: DEXAMETHASONE
     Dosage: 20 MG
     Route: 065
     Dates: start: 20230426, end: 20230511
  27. DEXAMETHASONE [Suspect]
     Active Substance: DEXAMETHASONE
     Dosage: 8 MG
     Route: 065
     Dates: start: 20240327, end: 20240411
  28. DEXAMETHASONE [Suspect]
     Active Substance: DEXAMETHASONE
     Dosage: 8 MG
     Route: 065
     Dates: start: 20231011, end: 20231019
  29. DEXAMETHASONE [Suspect]
     Active Substance: DEXAMETHASONE
     Dosage: 20 MG
     Route: 065
     Dates: start: 20230816, end: 20230831
  30. DEXAMETHASONE [Suspect]
     Active Substance: DEXAMETHASONE
     Dosage: 8 MG
     Route: 065
     Dates: start: 20240228, end: 20240314
  31. DEXAMETHASONE [Suspect]
     Active Substance: DEXAMETHASONE
     Dosage: 20 MG
     Route: 065
     Dates: start: 20230524, end: 20230608
  32. DEXAMETHASONE [Suspect]
     Active Substance: DEXAMETHASONE
     Dosage: 20 MG
     Route: 065
     Dates: start: 20230719, end: 20230810
  33. DEXAMETHASONE [Suspect]
     Active Substance: DEXAMETHASONE
     Dosage: 8 MG
     Route: 065
     Dates: start: 20240424
  34. DEXAMETHASONE [Suspect]
     Active Substance: DEXAMETHASONE
     Dosage: UNK
     Route: 065
     Dates: start: 20230724, end: 20230724
  35. ISATUXIMAB [Suspect]
     Active Substance: ISATUXIMAB
     Indication: Plasma cell myeloma refractory
     Dosage: 690 MG, BIW
     Route: 065
     Dates: start: 20230816, end: 20230830
  36. ISATUXIMAB [Suspect]
     Active Substance: ISATUXIMAB
     Dosage: 690 MG, BIW
     Route: 065
     Dates: start: 20231108, end: 20231122
  37. ISATUXIMAB [Suspect]
     Active Substance: ISATUXIMAB
     Dosage: 690 MG, BIW
     Route: 065
     Dates: start: 20240103, end: 20240117
  38. ISATUXIMAB [Suspect]
     Active Substance: ISATUXIMAB
     Dosage: 690 MG, BIW
     Route: 065
     Dates: start: 20230913, end: 20230927
  39. ISATUXIMAB [Suspect]
     Active Substance: ISATUXIMAB
     Dosage: 690 MG, BIW
     Route: 065
     Dates: start: 20240131, end: 20240206
  40. ISATUXIMAB [Suspect]
     Active Substance: ISATUXIMAB
     Dosage: 690 MG, BIW
     Route: 065
     Dates: start: 20240228, end: 20240313
  41. ISATUXIMAB [Suspect]
     Active Substance: ISATUXIMAB
     Dosage: 690 MG, BIW
     Route: 065
     Dates: start: 20231011, end: 20231011
  42. ISATUXIMAB [Suspect]
     Active Substance: ISATUXIMAB
     Dosage: 690 MG, BIW
     Route: 065
     Dates: start: 20231206, end: 20231206
  43. ISATUXIMAB [Suspect]
     Active Substance: ISATUXIMAB
     Dosage: 690 MG, BIW
     Route: 065
     Dates: start: 20240214, end: 20240215
  44. ISATUXIMAB [Suspect]
     Active Substance: ISATUXIMAB
     Dosage: 690 MG, BIW
     Route: 065
     Dates: start: 20230719, end: 20230802
  45. ISATUXIMAB [Suspect]
     Active Substance: ISATUXIMAB
     Dosage: 690 MG, BIW
     Route: 065
     Dates: start: 20230524, end: 20230607
  46. ISATUXIMAB [Suspect]
     Active Substance: ISATUXIMAB
     Dosage: 690 MG, BIW
     Route: 065
     Dates: start: 20240327, end: 20240411
  47. ISATUXIMAB [Suspect]
     Active Substance: ISATUXIMAB
     Dosage: 690 MG, BIW
     Route: 065
     Dates: start: 20230621, end: 20230705
  48. ISATUXIMAB [Suspect]
     Active Substance: ISATUXIMAB
     Dosage: 690 MG, QW
     Route: 065
     Dates: start: 20230426, end: 20230517
  49. PREDNISOLONE SODIUM SUCCINATE [Concomitant]
     Active Substance: PREDNISOLONE SODIUM SUCCINATE
     Dosage: UNK
     Dates: start: 20230426, end: 20230426
  50. OXYCODONE [Concomitant]
     Active Substance: OXYCODONE
     Indication: Peripheral sensory neuropathy
     Dosage: UNK
     Dates: start: 2013
  51. CLEMASTINE FUMARATE [Concomitant]
     Active Substance: CLEMASTINE FUMARATE
     Indication: Prophylaxis
     Dosage: UNK UNK, QCY
     Dates: start: 20230426
  52. DEXTROSE [Concomitant]
     Active Substance: DEXTROSE\DEXTROSE MONOHYDRATE
     Dosage: UNK UNK, QCY
     Dates: start: 20230426
  53. LYRICA [Concomitant]
     Active Substance: PREGABALIN
     Indication: Peripheral sensory neuropathy
     Dosage: UNK
  54. RAMIPRIL [Concomitant]
     Active Substance: RAMIPRIL
     Dosage: UNK
     Dates: start: 20230907
  55. PREGABALIN [Concomitant]
     Active Substance: PREGABALIN
     Indication: Neuropathy peripheral
     Dosage: UNK
     Dates: start: 20230906
  56. LANTUS [Concomitant]
     Active Substance: INSULIN GLARGINE
     Dosage: UNK
     Dates: start: 20230906
  57. ACETAMINOPHEN [Concomitant]
     Active Substance: ACETAMINOPHEN
     Dosage: UNK
     Dates: start: 20230906
  58. AREDIA [Concomitant]
     Active Substance: PAMIDRONATE DISODIUM
     Dosage: UNK
     Dates: start: 20130926
  59. METOCLOPRAMIDE [Concomitant]
     Active Substance: METOCLOPRAMIDE
     Dosage: UNK
     Dates: start: 20230724
  60. PANTOPRAZOLE SODIUM [Concomitant]
     Active Substance: PANTOPRAZOLE SODIUM
     Dosage: UNK
     Route: 065
     Dates: start: 20141120
  61. MONTELUKAST [Concomitant]
     Active Substance: MONTELUKAST SODIUM
     Indication: Prophylaxis
     Dosage: UNK UNK, QCY
     Dates: start: 20230426
  62. MOVICOL [Concomitant]
     Active Substance: POLYETHYLENE GLYCOL 3350\POTASSIUM CHLORIDE\SODIUM BICARBONATE\SODIUM CHLORIDE
     Indication: Constipation
     Dosage: UNK
     Dates: start: 20230831
  63. HUMAN RED BLOOD CELL [Concomitant]
     Active Substance: HUMAN RED BLOOD CELL
     Dosage: UNK
     Dates: start: 20230403, end: 20230403
  64. HUMAN RED BLOOD CELL [Concomitant]
     Active Substance: HUMAN RED BLOOD CELL
     Dosage: UNK
     Dates: start: 20230601, end: 20230601
  65. INSULIN HUMAN [Concomitant]
     Active Substance: INSULIN HUMAN
     Dosage: UNK
     Dates: start: 20230906
  66. METFORMIN [Concomitant]
     Active Substance: METFORMIN HYDROCHLORIDE
     Dosage: UNK
     Dates: start: 20230906

REACTIONS (4)
  - Pneumonia [Fatal]
  - Atrial fibrillation [Recovered/Resolved]
  - Nasopharyngitis [Recovered/Resolved]
  - Nasopharyngitis [Recovering/Resolving]

NARRATIVE: CASE EVENT DATE: 20240206
